FAERS Safety Report 8353456-6 (Version None)
Quarter: 2012Q2

REPORT INFORMATION
  Report Type: 
  Country: None (occurrence: None)
  Receive Date: 20120511
  Receipt Date: 20110328
  Transmission Date: 20120825
  Serious: No
  Sender: FDA-Public Use
  Company Number: US-GLAXOSMITHKLINE-A0920290A

PATIENT
  Age: 58 Year
  Sex: Female

DRUGS (9)
  1. HERCEPTIN [Concomitant]
  2. LOTREL [Concomitant]
  3. METFORMIN HCL [Concomitant]
  4. FLUOXETINE [Concomitant]
  5. LIPITOR [Concomitant]
  6. PAXIL [Concomitant]
  7. JANUVIA [Concomitant]
  8. TYKERB [Suspect]
     Indication: BREAST CANCER
     Dosage: 3TAB PER DAY
     Route: 048
     Dates: start: 20110312
  9. GLIMEPIRIDE [Concomitant]

REACTIONS (4)
  - GASTROINTESTINAL PAIN [None]
  - VOMITING [None]
  - NAUSEA [None]
  - DIARRHOEA [None]
